FAERS Safety Report 6527474-4 (Version None)
Quarter: 2010Q1

REPORT INFORMATION
  Report Type: 
  Country: None (occurrence: None)
  Receive Date: 20100105
  Receipt Date: 20091222
  Transmission Date: 20100710
  Serious: Yes (Hospitalization)
  Sender: FDA-Public Use
  Company Number: GB-MYLANLABS-2009S1021779

PATIENT
  Age: 58 Year
  Sex: Female

DRUGS (3)
  1. LOPERAMIDE [Suspect]
     Indication: DIARRHOEA
  2. LEVOTHYROXINE SODIUM [Concomitant]
     Indication: DRUG USE FOR UNKNOWN INDICATION
  3. RIFAXIMIN [Concomitant]
     Indication: DRUG USE FOR UNKNOWN INDICATION

REACTIONS (6)
  - AMOEBIC COLITIS [None]
  - HYPOALBUMINAEMIA [None]
  - HYPONATRAEMIA [None]
  - LARGE INTESTINE PERFORATION [None]
  - LYMPHOPENIA [None]
  - NEUTROPENIA [None]
